FAERS Safety Report 10501551 (Version 2)
Quarter: 2014Q4

REPORT INFORMATION
  Report Type: Spontaneous
  Country: BR (occurrence: BR)
  Receive Date: 20141007
  Receipt Date: 20141007
  Transmission Date: 20150528
  Serious: Yes (Other)
  Sender: FDA-Public Use
  Company Number: BR-SA-2013SA129284

PATIENT
  Age: 30 Year
  Sex: Female
  Weight: 58 kg

DRUGS (4)
  1. CLEXANE [Suspect]
     Active Substance: ENOXAPARIN SODIUM
     Indication: PREGNANCY
     Dosage: DOSE: ONE SYRINGE AT NIGHT
     Route: 058
     Dates: start: 20140730, end: 201408
  2. CLEXANE [Suspect]
     Active Substance: ENOXAPARIN SODIUM
     Indication: PRODUCT USED FOR UNKNOWN INDICATION
     Dosage: DOSE: ONE SYRINGE AT NIGHT
     Route: 058
     Dates: start: 20140730, end: 201408
  3. CLEXANE [Suspect]
     Active Substance: ENOXAPARIN SODIUM
     Indication: PRODUCT USED FOR UNKNOWN INDICATION
     Dosage: DOSE: ONE SYRINGE AT NIGHT
     Route: 058
     Dates: start: 20131208, end: 20140729
  4. CLEXANE [Suspect]
     Active Substance: ENOXAPARIN SODIUM
     Indication: PREGNANCY
     Dosage: DOSE: ONE SYRINGE AT NIGHT
     Route: 058
     Dates: start: 20131208, end: 20140729

REACTIONS (3)
  - Exposure during pregnancy [Unknown]
  - Caesarean section [Unknown]
  - Injection site pain [Recovered/Resolved]

NARRATIVE: CASE EVENT DATE: 20131208
